FAERS Safety Report 21174322 (Version 4)
Quarter: 2022Q4

REPORT INFORMATION
  Report Type: Spontaneous
  Country: US (occurrence: US)
  Receive Date: 20220804
  Receipt Date: 20221103
  Transmission Date: 20230113
  Serious: Yes (Other)
  Sender: FDA-Public Use
  Company Number: US-JNJFOC-20220760517

PATIENT
  Age: 63 Year
  Sex: Male
  Weight: 99.880 kg

DRUGS (1)
  1. SIMPONI [Suspect]
     Active Substance: GOLIMUMAB
     Indication: Colitis ulcerative
     Route: 058
     Dates: start: 201601

REACTIONS (6)
  - Haematochezia [Recovered/Resolved]
  - Defaecation urgency [Unknown]
  - Device malfunction [Unknown]
  - Injection site haemorrhage [Unknown]
  - Underdose [Unknown]
  - Accidental exposure to product [Unknown]

NARRATIVE: CASE EVENT DATE: 20220724
